FAERS Safety Report 24744436 (Version 1)
Quarter: 2024Q4

REPORT INFORMATION
  Report Type: Spontaneous
  Country: US (occurrence: US)
  Receive Date: 20241217
  Receipt Date: 20241217
  Transmission Date: 20250115
  Serious: Yes (Other)
  Sender: COOPERSURGICAL
  Company Number: US-COOPERSURGICAL, INC.-2024CPS003871

PATIENT
  Age: 31 Year
  Sex: Female
  Weight: 86.168 kg

DRUGS (1)
  1. PARAGARD T 380A [Suspect]
     Active Substance: COPPER
     Dosage: UNK
     Route: 015
     Dates: start: 20150617

REACTIONS (10)
  - Ovarian cyst [Unknown]
  - Hysterectomy [Unknown]
  - Abortion induced [Recovered/Resolved]
  - Diabetes mellitus [Unknown]
  - Device breakage [Recovered/Resolved]
  - Complication of device removal [Recovered/Resolved]
  - Device material issue [Recovered/Resolved]
  - Depression [Unknown]
  - Hypertension [Unknown]
  - Emotional distress [Unknown]

NARRATIVE: CASE EVENT DATE: 20181101
